FAERS Safety Report 14574020 (Version 1)
Quarter: 2018Q1

REPORT INFORMATION
  Report Type: Spontaneous
  Country: US (occurrence: US)
  Receive Date: 20180224
  Receipt Date: 20180224
  Transmission Date: 20180509
  Serious: Yes (Other)
  Sender: FDA-Public Use
  Company Number: None

PATIENT
  Sex: Female

DRUGS (5)
  1. TEMOZOLOMIDE. 20 MG [Suspect]
     Active Substance: TEMOZOLOMIDE
     Indication: NEOPLASM
     Route: 048
     Dates: start: 20171227, end: 201802
  2. CAPECITABINE. [Concomitant]
     Active Substance: CAPECITABINE
  3. TEMOZOLOMIDE, 250 MG [Suspect]
     Active Substance: TEMOZOLOMIDE
     Indication: NEOPLASM
     Route: 048
     Dates: start: 20171227, end: 201802
  4. GLIPIZIDE. [Concomitant]
     Active Substance: GLIPIZIDE
  5. DEXAMETHASON [Concomitant]
     Active Substance: DEXAMETHASONE

REACTIONS (1)
  - Pancytopenia [None]
